FAERS Safety Report 22318487 (Version 3)
Quarter: 2023Q2

REPORT INFORMATION
  Report Type: Report from Study
  Country: US (occurrence: US)
  Receive Date: 20230515
  Receipt Date: 20230529
  Transmission Date: 20230721
  Serious: Yes (Hospitalization)
  Sender: FDA-Public Use
  Company Number: US-AMGEN-USACT2023073885

PATIENT
  Age: 73 Year
  Sex: Female
  Weight: 68.5 kg

DRUGS (23)
  1. CARFILZOMIB [Suspect]
     Active Substance: CARFILZOMIB
     Indication: Plasma cell myeloma refractory
     Dosage: 130.9 MILLIGRAM, DAYS 1, 2, 15 AND 16 OF EACH 28-DAY CYCLE
     Route: 042
     Dates: start: 20210916, end: 20230411
  2. CARFILZOMIB [Suspect]
     Active Substance: CARFILZOMIB
     Dosage: 130.9 MILLIGRAM, DAYS 1, 2, 15 AND 16 OF EACH 28-DAY CYCLE
     Route: 042
     Dates: start: 20230511
  3. VENETOCLAX [Suspect]
     Active Substance: VENETOCLAX
     Indication: Plasma cell myeloma refractory
     Dosage: 800 MILLIGRAM, EVERY 1 DAYS
     Route: 048
     Dates: start: 20210916, end: 20230417
  4. VENETOCLAX [Suspect]
     Active Substance: VENETOCLAX
     Dosage: 800 MILLIGRAM, EVERY 1 DAY
     Route: 048
     Dates: start: 20230511
  5. DEXAMETHASONE [Suspect]
     Active Substance: DEXAMETHASONE
     Indication: Plasma cell myeloma refractory
     Dosage: 40 MILLIGRAM, DAYS 1, 8, AND 15 OF EACH 28-DAY CYCLE
     Route: 048
     Dates: start: 20210916, end: 20230330
  6. DEXAMETHASONE [Suspect]
     Active Substance: DEXAMETHASONE
     Dosage: 40 MILLIGRAM, DAYS 1, 8, AND 15 OF EACH 28-DAY CYCLE
     Route: 048
     Dates: start: 20230511
  7. ACYCLOVIR [Concomitant]
     Active Substance: ACYCLOVIR
     Indication: Infection prophylaxis
     Dosage: 400 MILLIGRAM, BID
     Dates: start: 20210909
  8. AMLODIPINE [Concomitant]
     Active Substance: AMLODIPINE BESYLATE
     Indication: Hypertension
     Dosage: 10 MILLIGRAM, QD
     Dates: start: 20130918
  9. LOPERAMIDE [Concomitant]
     Active Substance: LOPERAMIDE
     Indication: Diarrhoea
     Dosage: 2 MILLIGRAM, AS NECESSARY
     Dates: start: 20170328
  10. VITAMINS [Concomitant]
     Active Substance: VITAMINS
     Indication: Nutritional supplementation
     Dosage: 1 DOSAGE FORM, QD
     Dates: start: 20200812
  11. POTASSIUM CHLORIDE [Concomitant]
     Active Substance: POTASSIUM CHLORIDE
     Indication: Prophylaxis
     Dosage: 20 MILLIEQUIVALENT, BID
     Dates: start: 20210422
  12. POTASSIUM CHLORIDE [Concomitant]
     Active Substance: POTASSIUM CHLORIDE
     Dosage: 40 MILLIEQUIVALENT, AS NECESSARY
     Dates: start: 20221229
  13. ASPIRIN [Concomitant]
     Active Substance: ASPIRIN
     Indication: Pain
     Dosage: 325 MILLIGRAM, QD
     Dates: start: 20140529
  14. OMEPRAZOLE [Concomitant]
     Active Substance: OMEPRAZOLE
     Indication: Prophylaxis against gastrointestinal ulcer
     Dosage: 20 MILLIGRAM, QD
     Dates: start: 20210518
  15. ONDANSETRON [Concomitant]
     Active Substance: ONDANSETRON
     Indication: Nausea
     Dosage: 8 MILLIGRAM, AS NECESSARY
     Dates: start: 20210917
  16. DICLOFENAC [Concomitant]
     Active Substance: DICLOFENAC
     Indication: Pain in extremity
     Dosage: 2 GRAM, BID
     Dates: start: 20211111
  17. DICLOFENAC [Concomitant]
     Active Substance: DICLOFENAC
     Indication: Back pain
  18. SULFAMETHOXAZOLE AND TRIMETHOPRIM [Concomitant]
     Active Substance: SULFAMETHOXAZOLE\TRIMETHOPRIM
     Indication: Antibiotic prophylaxis
     Dosage: 1 DOSAGE FORM ( MON, WED, FRI
     Dates: start: 20220312
  19. FAMOTIDINE [Concomitant]
     Active Substance: FAMOTIDINE
     Indication: Prophylaxis against gastrointestinal ulcer
     Dosage: 40 MILLIGRAM, QHS
     Dates: start: 20220929
  20. MIRTAZAPINE [Concomitant]
     Active Substance: MIRTAZAPINE
     Indication: Decreased appetite
     Dosage: 7.5 MILLIGRAM, QHS
     Dates: start: 20220929
  21. MAGNESIUM OXIDE [Concomitant]
     Active Substance: MAGNESIUM OXIDE
     Indication: Hypomagnesaemia
     Dosage: 400 MILLIGRAM, AS NECESSARY
     Dates: start: 20190814
  22. MAGNESIUM SULFATE [Concomitant]
     Active Substance: MAGNESIUM SULFATE
     Indication: Hypomagnesaemia
     Dosage: 4 MILLIGRAM, AS NECESSARY
     Dates: start: 20220707
  23. PSYLLIUM HUSK [Concomitant]
     Active Substance: PSYLLIUM HUSK
     Indication: Nutritional supplementation
     Dosage: 0.4 GRAM, OTHER, SPECIFY (NOT REPORTED)
     Dates: start: 20220728

REACTIONS (2)
  - Cellulitis [Recovered/Resolved]
  - Citrobacter bacteraemia [Recovered/Resolved]

NARRATIVE: CASE EVENT DATE: 20230419
